FAERS Safety Report 17757964 (Version 1)
Quarter: 2020Q2

REPORT INFORMATION
  Report Type: Spontaneous
  Country: US (occurrence: US)
  Receive Date: 20200507
  Receipt Date: 20200507
  Transmission Date: 20200714
  Serious: No
  Sender: FDA-Public Use
  Company Number: US-BAYER-2020-066625

PATIENT
  Age: 83 Year
  Sex: Male

DRUGS (2)
  1. MIRALAX [Suspect]
     Active Substance: POLYETHYLENE GLYCOL 3350
     Indication: LAXATIVE SUPPORTIVE CARE
     Dosage: 1 DF
     Route: 048
     Dates: start: 20200415
  2. BABY ASPIRIN [Concomitant]
     Active Substance: ASPIRIN

REACTIONS (4)
  - Product use in unapproved indication [Unknown]
  - Abnormal faeces [Unknown]
  - Diarrhoea [Unknown]
  - Off label use [Unknown]
